FAERS Safety Report 8385693-9 (Version None)
Quarter: 2012Q2

REPORT INFORMATION
  Report Type: 
  Country: None (occurrence: None)
  Receive Date: 20120525
  Receipt Date: 20120503
  Transmission Date: 20120825
  Serious: No
  Sender: FDA-Public Use
  Company Number: US-PFIZER INC-2012126020

PATIENT

DRUGS (2)
  1. EFFEXOR [Suspect]
     Indication: PANIC DISORDER
     Dosage: 37.5 MG, ALTERNATE DAY
  2. EFFEXOR [Suspect]
     Indication: MAJOR DEPRESSION
     Dosage: 150 MG DAILY
     Dates: start: 20100101

REACTIONS (1)
  - FEELING ABNORMAL [None]
